FAERS Safety Report 4846749-8 (Version None)
Quarter: 2005Q4

REPORT INFORMATION
  Report Type: 
  Country: None (occurrence: None)
  Receive Date: 20051202
  Receipt Date: 20051123
  Transmission Date: 20060501
  Serious: Yes (Life-Threatening, Other)
  Sender: FDA-Public Use
  Company Number: 2005-11-1325

PATIENT
  Age: 24 Year
  Sex: Female
  Weight: 68 kg

DRUGS (2)
  1. CELESTONE [Suspect]
     Dosage: 24 MG TOTAL
     Dates: start: 20051012, end: 20051013
  2. LOXEN (NICARDIPINE) INJECTABLE SOLUTION [Suspect]
     Indication: PREMATURE LABOUR
     Dosage: 5MG/5ML INTRAVENOUS
     Route: 042
     Dates: start: 20051012, end: 20051015

REACTIONS (8)
  - ATRIAL FIBRILLATION [None]
  - CAESAREAN SECTION [None]
  - CHEST DISCOMFORT [None]
  - COMPLICATIONS OF MATERNAL EXPOSURE TO THERAPEUTIC DRUGS [None]
  - DRUG EXPOSURE DURING PREGNANCY [None]
  - PALPITATIONS [None]
  - POST PROCEDURAL HAEMATOMA [None]
  - PULMONARY OEDEMA [None]
